FAERS Safety Report 21038448 (Version 1)
Quarter: 2022Q3

REPORT INFORMATION
  Report Type: Spontaneous
  Country: FR (occurrence: FR)
  Receive Date: 20220704
  Receipt Date: 20220704
  Transmission Date: 20221026
  Serious: Yes (Death, Other)
  Sender: FDA-Public Use
  Company Number: FR-drreddys-LIT/FRA/22/0151742

PATIENT
  Age: 50 Year
  Sex: Female

DRUGS (6)
  1. PEMETREXED [Suspect]
     Active Substance: PEMETREXED
     Indication: Non-small cell lung cancer
     Dosage: ADJUVANT CHEMOTHERAPY
  2. PEMETREXED [Suspect]
     Active Substance: PEMETREXED
     Indication: Lung adenocarcinoma
     Dosage: SHE RECEIVED ONLY THREE CYCLES OF CHEMOTHERAPY DUE TO A MAJOR CACHEXIA
  3. CARBOPLATIN [Suspect]
     Active Substance: CARBOPLATIN
     Indication: Non-small cell lung cancer
     Dosage: SHE RECEIVED ONLY THREE CYCLES OF CHEMOTHERAPY DUE TO A MAJOR CACHEXIA
  4. CARBOPLATIN [Suspect]
     Active Substance: CARBOPLATIN
     Indication: Lung adenocarcinoma
  5. CISPLATIN [Suspect]
     Active Substance: CISPLATIN
     Indication: Non-small cell lung cancer
  6. CISPLATIN [Suspect]
     Active Substance: CISPLATIN
     Indication: Lung adenocarcinoma

REACTIONS (4)
  - Death [Fatal]
  - Neoplasm progression [Unknown]
  - Cachexia [Unknown]
  - Drug ineffective [Unknown]
